FAERS Safety Report 21148726 (Version 3)
Quarter: 2024Q2

REPORT INFORMATION
  Report Type: Report from Study
  Country: US (occurrence: US)
  Receive Date: 20220729
  Receipt Date: 20240405
  Transmission Date: 20240716
  Serious: Yes (Other)
  Sender: FDA-Public Use
  Company Number: US-ABBVIE-22K-163-4484101-00

PATIENT
  Sex: Female

DRUGS (5)
  1. RINVOQ [Suspect]
     Active Substance: UPADACITINIB
     Indication: Rheumatoid arthritis
     Dosage: FORM STRENGTH: 15 MILLIGRAM
     Route: 048
  2. RINVOQ [Suspect]
     Active Substance: UPADACITINIB
     Indication: Rheumatoid arthritis
     Dosage: FORM STRENGTH: 15 MILLIGRAM
     Route: 048
     Dates: end: 202210
  3. PFIZER-BIONTECH COVID-19 VACCINE [Concomitant]
     Active Substance: TOZINAMERAN
     Indication: COVID-19 immunisation
     Dosage: TIME INTERVAL: 1 TOTAL: 1ST DOSE
     Route: 030
     Dates: start: 20210213, end: 20210213
  4. PFIZER-BIONTECH COVID-19 VACCINE [Concomitant]
     Active Substance: TOZINAMERAN
     Indication: COVID-19 immunisation
     Dosage: TIME INTERVAL: 1 TOTAL: 2ND DOSE
     Route: 030
     Dates: start: 20210306, end: 20210306
  5. PFIZER-BIONTECH COVID-19 VACCINE [Concomitant]
     Active Substance: TOZINAMERAN
     Indication: COVID-19 immunisation
     Dosage: TIME INTERVAL: 1 TOTAL: 3RD BOOSTER DOSE
     Route: 030
     Dates: start: 20210321, end: 20210321

REACTIONS (2)
  - Joint arthroplasty [Unknown]
  - Post procedural infection [Unknown]
